FAERS Safety Report 4303841-4 (Version None)
Quarter: 2004Q1

REPORT INFORMATION
  Report Type: 
  Country: None (occurrence: None)
  Receive Date: 20040224
  Receipt Date: 20040224
  Transmission Date: 20041129
  Serious: Yes (Other)
  Sender: FDA-Public Use
  Company Number: None

PATIENT
  Sex: Female

DRUGS (3)
  1. KLONOPIN [Suspect]
     Dosage: ONE DOSE MG PO BID + 2 MG PO QHS
     Route: 048
     Dates: start: 20011227
  2. TRILEPTAL [Concomitant]
  3. ZOLOFT [Concomitant]

REACTIONS (2)
  - DRUG INEFFECTIVE [None]
  - PHARMACEUTICAL PRODUCT COMPLAINT [None]
